FAERS Safety Report 18770912 (Version 2)
Quarter: 2021Q1

REPORT INFORMATION
  Report Type: Report from Study
  Country: US (occurrence: US)
  Receive Date: 20210121
  Receipt Date: 20210208
  Transmission Date: 20210419
  Serious: No
  Sender: FDA-Public Use
  Company Number: NVSC2021US008698

PATIENT
  Sex: Female

DRUGS (3)
  1. FULVESTRANT. [Suspect]
     Active Substance: FULVESTRANT
     Indication: BREAST CANCER
     Dosage: 500 MG, QMO
     Route: 030
  2. FULVESTRANT. [Suspect]
     Active Substance: FULVESTRANT
     Route: 030
  3. PIQRAY [Suspect]
     Active Substance: ALPELISIB
     Indication: BREAST CANCER
     Dosage: 300 MG, QD
     Route: 048
     Dates: start: 20210113

REACTIONS (5)
  - Headache [Recovering/Resolving]
  - Hypoglycaemia [Recovered/Resolved]
  - Hyperglycaemia [Recovering/Resolving]
  - Diarrhoea [Recovering/Resolving]
  - Fluid retention [Recovered/Resolved]
